FAERS Safety Report 8899392 (Version 1)
Quarter: 2012Q4

REPORT INFORMATION
  Report Type: 
  Country: US (occurrence: US)
  Receive Date: 20121108
  Receipt Date: 20121108
  Transmission Date: 20130627
  Serious: No
  Sender: FDA-Public Use
  Company Number: US-AMGEN-USASP2012032618

PATIENT
  Age: 38 Year
  Sex: Female
  Weight: 54.42 kg

DRUGS (8)
  1. ENBREL [Suspect]
     Indication: PRODUCT USED FOR UNKNOWN INDICATION
     Dosage: 50 mg, qwk
     Route: 058
  2. DICLOFENAC [Concomitant]
     Dosage: 100 mg, UNK
  3. METHOTREXATE [Concomitant]
     Dosage: 40 ml, UNK
  4. VITAMIN D NOS [Concomitant]
     Dosage: UNK
  5. FOLIC ACID [Concomitant]
     Dosage: UNK
  6. MULTI TABS [Concomitant]
     Dosage: UNK
  7. ALOE VERA [Concomitant]
     Dosage: 500 mg, UNK
  8. VITAMIN B6 [Concomitant]
     Dosage: 50 mg, UNK

REACTIONS (4)
  - Musculoskeletal stiffness [Unknown]
  - Arthralgia [Unknown]
  - Fatigue [Unknown]
  - Injection site bruising [Unknown]
